FAERS Safety Report 8285950 (Version 2)
Quarter: 2012Q4

REPORT INFORMATION
  Report Type: 
  Country: US (occurrence: US)
  Receive Date: 20111213
  Receipt Date: 20121113
  Transmission Date: 20130627
  Serious: No
  Sender: FDA-Public Use
  Company Number: US-AMGEN-USASP2011047128

PATIENT
  Age: 92 Year
  Sex: Female

DRUGS (8)
  1. ARANESP [Suspect]
     Indication: ANAEMIA
     Dosage: UNK
     Dates: start: 2004, end: 20110909
  2. ARANESP [Suspect]
     Dosage: 0.3 mg, q2wk
     Dates: start: 201108, end: 20110909
  3. CELEXA [Concomitant]
  4. ARICEPT [Concomitant]
  5. LISINOPRIL [Concomitant]
  6. LASIX [Concomitant]
  7. COLACE [Concomitant]
  8. FERROUS SULFATE [Concomitant]

REACTIONS (1)
  - Haemoglobin decreased [Not Recovered/Not Resolved]
